FAERS Safety Report 10120994 (Version 3)
Quarter: 2014Q2

REPORT INFORMATION
  Report Type: Spontaneous
  Country: JP (occurrence: JP)
  Receive Date: 20140425
  Receipt Date: 20140512
  Transmission Date: 20141212
  Serious: Yes (Hospitalization)
  Sender: FDA-Public Use
  Company Number: JP-GLAXOSMITHKLINE-B0987247A

PATIENT
  Age: 90 Year
  Sex: Female
  Weight: 45 kg

DRUGS (5)
  1. ZOVIRAX [Suspect]
     Indication: HERPES ZOSTER
     Dosage: 250MG THREE TIMES PER DAY
     Route: 042
     Dates: start: 20140308, end: 20140312
  2. KN NO.3 INJECTION [Concomitant]
     Dosage: 500ML THREE TIMES PER DAY
     Route: 042
     Dates: start: 20140308, end: 20140312
  3. SEISHOKU [Concomitant]
     Dosage: 100ML THREE TIMES PER DAY
     Route: 042
     Dates: start: 20140308
  4. TARIVID [Concomitant]
     Route: 061
     Dates: start: 20140308, end: 20140331
  5. BARAMYCIN [Concomitant]
     Route: 061
     Dates: start: 20140308, end: 20140331

REACTIONS (7)
  - Urinary retention [Recovered/Resolved]
  - Prerenal failure [Recovered/Resolved]
  - Restlessness [Unknown]
  - Somnolence [Unknown]
  - Bradyphrenia [Recovering/Resolving]
  - Blood urea increased [Recovering/Resolving]
  - Blood creatinine increased [Recovering/Resolving]
